FAERS Safety Report 9278395 (Version 1)
Quarter: 2013Q2

REPORT INFORMATION
  Report Type: Spontaneous
  Country: US (occurrence: US)
  Receive Date: 20130508
  Receipt Date: 20130508
  Transmission Date: 20140414
  Serious: Yes (Hospitalization, Other)
  Sender: FDA-Public Use
  Company Number: US-JNJFOC-20130414724

PATIENT
  Sex: Female

DRUGS (15)
  1. DOXORUBICIN [Suspect]
     Indication: HODGKIN^S DISEASE
     Route: 042
  2. BLEOMYCIN [Suspect]
     Indication: HODGKIN^S DISEASE
     Route: 065
  3. VINBLASTINE [Suspect]
     Indication: HODGKIN^S DISEASE
     Route: 065
  4. DACARBAZINE [Suspect]
     Indication: HODGKIN^S DISEASE
     Route: 065
  5. CYCLOPHOSPHAMIDE [Suspect]
     Indication: HODGKIN^S DISEASE
     Route: 065
  6. VINCRISTINE [Suspect]
     Indication: HODGKIN^S DISEASE
     Route: 065
  7. PREDNISONE [Suspect]
     Indication: HODGKIN^S DISEASE
     Route: 065
  8. RITUXIMAB [Suspect]
     Indication: HODGKIN^S DISEASE
     Route: 065
  9. DEXAMETHASONE [Suspect]
     Indication: HODGKIN^S DISEASE
     Route: 065
  10. CYTARABINE [Suspect]
     Indication: HODGKIN^S DISEASE
     Route: 065
  11. METHOTREXATE [Suspect]
     Indication: HODGKIN^S DISEASE
     Route: 065
  12. PROCARBAZINE [Suspect]
     Indication: HODGKIN^S DISEASE
     Route: 065
  13. LEUCOVORIN [Suspect]
     Indication: HODGKIN^S DISEASE
     Route: 065
  14. DECADRON [Suspect]
     Indication: HODGKIN^S DISEASE
     Route: 065
  15. RADIOTHERAPY [Suspect]
     Indication: HODGKIN^S DISEASE
     Route: 065

REACTIONS (3)
  - Superior vena cava syndrome [Unknown]
  - Foetal death [Recovered/Resolved]
  - Exposure during pregnancy [Recovered/Resolved]
